FAERS Safety Report 20063685 (Version 2)
Quarter: 2021Q4

REPORT INFORMATION
  Report Type: Spontaneous
  Country: AR (occurrence: AR)
  Receive Date: 20211112
  Receipt Date: 20211129
  Transmission Date: 20220304
  Serious: Yes (Hospitalization, Other)
  Sender: FDA-Public Use
  Company Number: AR-SEBELA IRELAND LIMITED-2021SEB00129

PATIENT
  Age: 85 Year
  Sex: Female

DRUGS (5)
  1. HYDROCORTISONE [Suspect]
     Active Substance: HYDROCORTISONE
     Dosage: 10 MG, 1X/DAY
     Route: 065
  2. HYDROCORTISONE [Suspect]
     Active Substance: HYDROCORTISONE
     Dosage: 100 MG, ONE TIME INTRAVENOUS BOLUS
     Route: 042
  3. HYDROCORTISONE [Suspect]
     Active Substance: HYDROCORTISONE
     Dosage: 30 MG, 1X/DAY
     Route: 065
  4. MODAFINIL [Suspect]
     Active Substance: MODAFINIL
     Indication: Apathy
     Dosage: 100 MG, 1X/DAY
     Route: 065
  5. LEVOTHYROXINE [Concomitant]
     Active Substance: LEVOTHYROXINE
     Dosage: 50 MICROGRAMS, 1X/DAY
     Route: 065

REACTIONS (2)
  - Adrenocortical insufficiency acute [Recovered/Resolved]
  - Drug interaction [Recovered/Resolved]
